FAERS Safety Report 9756091 (Version 1)
Quarter: 2013Q4

REPORT INFORMATION
  Report Type: Spontaneous
  Country: US (occurrence: US)
  Receive Date: 20131213
  Receipt Date: 20131213
  Transmission Date: 20140711
  Serious: No
  Sender: FDA-Public Use
  Company Number: US-GLAXOSMITHKLINE-A1030051A

PATIENT
  Age: 41 Year
  Sex: Female

DRUGS (3)
  1. NICODERM CQ CLEAR 21MG [Suspect]
     Indication: EX-TOBACCO USER
     Dosage: 21MG PER DAY
     Route: 062
     Dates: start: 2012
  2. NICODERM CQ CLEAR 14MG [Suspect]
     Indication: EX-TOBACCO USER
     Dates: start: 201306
  3. NICODERM CQ CLEAR 7MG [Suspect]
     Indication: EX-TOBACCO USER
     Route: 062
     Dates: start: 20130703

REACTIONS (5)
  - Feeling abnormal [Not Recovered/Not Resolved]
  - Product quality issue [Unknown]
  - Heart rate increased [Recovered/Resolved]
  - Overdose [Recovered/Resolved]
  - Drug administration error [Unknown]
